FAERS Safety Report 16252510 (Version 14)
Quarter: 2019Q4

REPORT INFORMATION
  Report Type: Report from Study
  Country: BE (occurrence: BE)
  Receive Date: 20190429
  Receipt Date: 20191104
  Transmission Date: 20200122
  Serious: Yes (Hospitalization, Other)
  Sender: FDA-Public Use
  Company Number: BE-BAYER-2019-045312

PATIENT
  Age: 67 Year
  Sex: Male

DRUGS (17)
  1. STIVARGA [Suspect]
     Active Substance: REGORAFENIB
     Indication: COLORECTAL CANCER
     Dosage: 120 MG, QD
     Dates: start: 20190430, end: 2019
  2. STIVARGA [Suspect]
     Active Substance: REGORAFENIB
     Indication: COLORECTAL CANCER
     Dosage: DOSE REDUCED
     Dates: start: 201905, end: 201905
  3. STIVARGA [Suspect]
     Active Substance: REGORAFENIB
     Indication: COLORECTAL CANCER
     Dosage: 80 MG DAILY
     Dates: start: 20190928, end: 20191017
  4. TRIPLIXAM [Concomitant]
     Active Substance: AMLODIPINE BESYLATE\INDAPAMIDE\PERINDOPRIL ARGININE
     Dosage: UNK
  5. STIVARGA [Suspect]
     Active Substance: REGORAFENIB
     Indication: COLORECTAL CANCER
     Dosage: 80 MG DAILY
     Dates: start: 20190819
  6. PSYLLIUM HUSKS [Concomitant]
     Active Substance: PSYLLIUM HUSK
     Indication: CONSTIPATION
     Dosage: UNK
     Dates: start: 201907
  7. STIVARGA [Suspect]
     Active Substance: REGORAFENIB
     Indication: HEPATOCELLULAR CARCINOMA
     Dosage: DIALY DOSE 120 MG
     Dates: start: 20190218, end: 2019
  8. STIVARGA [Suspect]
     Active Substance: REGORAFENIB
     Indication: COLORECTAL CANCER
     Dosage: DAILY DOSE 160 MG
     Dates: start: 20190211, end: 201902
  9. BISOPROLOL [Concomitant]
     Active Substance: BISOPROLOL
     Dosage: UNK
  10. TRAMADOL/PARACETAMOL [Concomitant]
     Active Substance: ACETAMINOPHEN\TRAMADOL
     Indication: PAIN
     Dosage: 37,5/325 MG
  11. STIVARGA [Suspect]
     Active Substance: REGORAFENIB
     Indication: COLORECTAL CANCER
     Dosage: DAILY DOSE 160 MG
     Dates: start: 20190318, end: 2019
  12. STIVARGA [Suspect]
     Active Substance: REGORAFENIB
     Indication: COLORECTAL CANCER
     Dosage: DAILY DOSE 120 MG
     Dates: start: 20190624, end: 2019
  13. PANTOMED [DEXPANTHENOL] [Concomitant]
     Dosage: UNK
  14. DERMOVATE [Concomitant]
     Active Substance: CLOBETASOL
     Indication: SKIN DISORDER
     Dosage: UNK
     Dates: start: 20190408
  15. STIVARGA [Suspect]
     Active Substance: REGORAFENIB
     Indication: COLORECTAL CANCER
     Dosage: DAILY DOSE 160 MG
     Dates: start: 20190513, end: 2019
  16. XGEVA [Concomitant]
     Active Substance: DENOSUMAB
     Dosage: 1 INJECTION/MONTH
     Dates: start: 20190415
  17. NIVOLUMAB [Concomitant]
     Active Substance: NIVOLUMAB
     Indication: COLORECTAL CANCER
     Dosage: PERFUSION EVERY 2 WEEKS
     Dates: start: 20190719

REACTIONS (69)
  - C-reactive protein increased [None]
  - Metastases to bone [None]
  - Pruritus [Recovered/Resolved]
  - Feeling cold [Not Recovered/Not Resolved]
  - Palmar-plantar erythrodysaesthesia syndrome [Recovering/Resolving]
  - Hypotension [Recovered/Resolved]
  - Neck pain [Not Recovered/Not Resolved]
  - Hypogeusia [Recovering/Resolving]
  - Agitation [Not Recovered/Not Resolved]
  - Dyspnoea exertional [Not Recovered/Not Resolved]
  - Off label use [None]
  - Dyschezia [Not Recovered/Not Resolved]
  - Musculoskeletal pain [Not Recovered/Not Resolved]
  - Asthenia [None]
  - Hypertension [None]
  - Intestinal obstruction [Recovered/Resolved]
  - Colorectal cancer [Not Recovered/Not Resolved]
  - Thirst [Not Recovered/Not Resolved]
  - Muscle spasms [Not Recovered/Not Resolved]
  - Fatigue [None]
  - Poor quality sleep [Not Recovered/Not Resolved]
  - Disturbance in attention [Not Recovered/Not Resolved]
  - Disturbance in attention [Not Recovered/Not Resolved]
  - Change of bowel habit [Not Recovered/Not Resolved]
  - Stomatitis [Not Recovered/Not Resolved]
  - Pain [Not Recovered/Not Resolved]
  - Muscle spasms [Recovering/Resolving]
  - Musculoskeletal pain [Not Recovered/Not Resolved]
  - Adverse drug reaction [Not Recovered/Not Resolved]
  - Tumour marker increased [None]
  - Thirst [None]
  - Urinary retention [Recovering/Resolving]
  - Alpha 1 foetoprotein decreased [None]
  - Feeling abnormal [None]
  - Oropharyngeal pain [Recovering/Resolving]
  - Taste disorder [Not Recovered/Not Resolved]
  - Productive cough [Not Recovered/Not Resolved]
  - Feeling hot [Not Recovered/Not Resolved]
  - Nausea [Recovering/Resolving]
  - Erythema [Not Recovered/Not Resolved]
  - Cough [Recovering/Resolving]
  - Feeling cold [None]
  - Photosensitivity reaction [None]
  - Limb discomfort [Not Recovered/Not Resolved]
  - Mucosal inflammation [Not Recovered/Not Resolved]
  - Visual impairment [Not Recovered/Not Resolved]
  - Dysphonia [Not Recovered/Not Resolved]
  - Hospitalisation [None]
  - Aphonia [Not Recovered/Not Resolved]
  - Skin abrasion [None]
  - Fatigue [Not Recovered/Not Resolved]
  - Nausea [Recovering/Resolving]
  - Decreased appetite [Recovering/Resolving]
  - Skin irritation [Recovering/Resolving]
  - Faeces discoloured [Not Recovered/Not Resolved]
  - Dry mouth [None]
  - Dry mouth [Not Recovered/Not Resolved]
  - Chills [None]
  - Fall [Recovered/Resolved]
  - Gait disturbance [Not Recovered/Not Resolved]
  - Palmar-plantar erythrodysaesthesia syndrome [Not Recovered/Not Resolved]
  - Stress urinary incontinence [Recovering/Resolving]
  - Hyperkeratosis [Recovering/Resolving]
  - Scan abnormal [None]
  - Visual impairment [Not Recovered/Not Resolved]
  - Fatigue [Not Recovered/Not Resolved]
  - Sitting disability [Not Recovered/Not Resolved]
  - Hypotension [Not Recovered/Not Resolved]
  - Photosensitivity reaction [Not Recovered/Not Resolved]

NARRATIVE: CASE EVENT DATE: 2019
